FAERS Safety Report 25353107 (Version 1)
Quarter: 2025Q2

REPORT INFORMATION
  Report Type: Spontaneous
  Country: US (occurrence: US)
  Receive Date: 20250523
  Receipt Date: 20250523
  Transmission Date: 20250717
  Serious: Yes (Hospitalization)
  Sender: DOMPE FARMACEUTICI
  Company Number: US-FARMAPROD-202505-1592

PATIENT
  Sex: Male
  Weight: 110.99 kg

DRUGS (22)
  1. OXERVATE [Suspect]
     Active Substance: CENEGERMIN-BKBJ
     Indication: Neurotrophic keratopathy
     Route: 047
     Dates: start: 20250404
  2. LANSOPRAZOLE [Concomitant]
     Active Substance: LANSOPRAZOLE
  3. FUROSEMIDE [Concomitant]
     Active Substance: FUROSEMIDE
  4. TRULICITY [Concomitant]
     Active Substance: DULAGLUTIDE
  5. OFLOXACIN [Concomitant]
     Active Substance: OFLOXACIN
  6. LANTUS SOLOSTAR [Concomitant]
     Active Substance: INSULIN GLARGINE
  7. TIMOLOL MALEATE [Concomitant]
     Active Substance: TIMOLOL MALEATE
  8. ASPIRIN [Concomitant]
     Active Substance: ASPIRIN
  9. LISINOPRIL [Concomitant]
     Active Substance: LISINOPRIL
  10. PRAVASTATIN SODIUM [Concomitant]
     Active Substance: PRAVASTATIN SODIUM
  11. AMMONIUM LACTATE [Concomitant]
     Active Substance: AMMONIUM LACTATE
  12. CYCLOSPORINE [Concomitant]
     Active Substance: CYCLOSPORINE
  13. ARTIFICIAL TEARS [Concomitant]
  14. LUMIGAN [Concomitant]
     Active Substance: BIMATOPROST
  15. PYRIDOSTIGMINE BROMIDE [Concomitant]
     Active Substance: PYRIDOSTIGMINE BROMIDE
  16. INSULIN LISPRO [Concomitant]
     Active Substance: INSULIN LISPRO
  17. CLOPIDOGREL [Concomitant]
     Active Substance: CLOPIDOGREL BISULFATE
  18. ONDANSETRON HYDROCHLORIDE [Concomitant]
     Active Substance: ONDANSETRON HYDROCHLORIDE
  19. XIIDRA [Concomitant]
     Active Substance: LIFITEGRAST
  20. LEVOTHYROXINE SODIUM [Concomitant]
     Active Substance: LEVOTHYROXINE SODIUM
  21. VALPROIC ACID [Concomitant]
     Active Substance: VALPROIC ACID
  22. INSULIN GLARGINE-YFGN [Concomitant]
     Active Substance: INSULIN GLARGINE-YFGN

REACTIONS (2)
  - Hospitalisation [Unknown]
  - Therapy interrupted [Unknown]
